FAERS Safety Report 8902344 (Version 2)
Quarter: 2013Q3

REPORT INFORMATION
  Report Type: Spontaneous
  Country: US (occurrence: US)
  Receive Date: 20121112
  Receipt Date: 20130903
  Transmission Date: 20140515
  Serious: No
  Sender: FDA-Public Use
  Company Number: US-PFIZER INC-2012280086

PATIENT
  Age: 59 Year
  Sex: Female

DRUGS (21)
  1. LYRICA [Suspect]
     Dosage: 75 MG, 2X/DAY
     Route: 048
  2. LYRICA [Suspect]
     Dosage: 150 MG, BEDTIME
     Route: 048
  3. EFFEXOR XR [Suspect]
     Indication: FIBROMYALGIA
     Dosage: 75 MG, 1X/DAY
  4. EFFEXOR XR [Suspect]
     Indication: DEPRESSION
     Dosage: 300 MG, 1X/DAY
     Route: 048
  5. MOBIC [Suspect]
     Dosage: 7.5 MG, 1X/DAY
  6. AMBIEN [Suspect]
     Indication: FIBROMYALGIA
     Dosage: 10 MG, BEDTIME
  7. AMBIEN [Suspect]
     Indication: DEPRESSION
  8. ACTONEL [Suspect]
     Indication: OSTEOPENIA
     Dosage: UNK
  9. FLEXERIL [Suspect]
     Dosage: 10 MG, 1X/DAY
  10. TYLENOL [Concomitant]
     Dosage: 650 MG, AS NEEDED
  11. KEPPRA [Concomitant]
     Dosage: 250 MG, (1 TAB DAILY)
  12. MELOXICAM [Concomitant]
     Dosage: 7.5 MG, 1X/DAY
  13. CYCLOBENZAPRINE HYDROCHLORIDE [Concomitant]
     Dosage: 10 MG, (1 TAB AT NIGHT AS NEEDED)
  14. NORCO [Concomitant]
     Dosage: 325 MG-5 MG TABLET 1 TAB Q 8 HRS PRN
  15. VITAMIN D [Concomitant]
     Dosage: 50000 IU, WEEKLY
  16. ZOLPIDEM TARTRATE [Concomitant]
     Dosage: 10 MG, 1X/DAY (AT BEDTIME)
  17. BUSPIRONE [Concomitant]
     Dosage: 10 MG, AS NEEDED
  18. CALCIUM [Concomitant]
  19. IMITREX [Concomitant]
     Indication: MIGRAINE
     Dosage: NO MORE THAN THREE TO FOUR TIMES PER YEAR
     Route: 045
  20. BUSPIRONE [Concomitant]
     Dosage: 10 MG, AS NEEDED
  21. VIMOVO [Concomitant]
     Dosage: 20 MG/500 MG, 1X/DAY

REACTIONS (19)
  - Arthralgia [Unknown]
  - Musculoskeletal stiffness [Unknown]
  - Pain [Unknown]
  - Muscular weakness [Unknown]
  - Myalgia [Unknown]
  - Asthenia [Unknown]
  - Fatigue [Unknown]
  - Dry eye [Unknown]
  - Photosensitivity reaction [Unknown]
  - Insomnia [Unknown]
  - Dyspepsia [Unknown]
  - Headache [Unknown]
  - Sinus headache [Unknown]
  - Stomatitis [Unknown]
  - Joint swelling [Unknown]
  - Depression [Unknown]
  - Night sweats [Unknown]
  - Weight increased [Unknown]
  - Dry mouth [Unknown]
